FAERS Safety Report 5538292-8 (Version None)
Quarter: 2007Q4

REPORT INFORMATION
  Report Type: 
  Country: None (occurrence: None)
  Receive Date: 20071123
  Receipt Date: 20070514
  Transmission Date: 20080405
  Serious: Yes (Hospitalization)
  Sender: FDA-Public Use
  Company Number: US-JNJFOC-20070503764

PATIENT
  Age: 66 Year
  Sex: Female

DRUGS (4)
  1. LEVAQUIN [Suspect]
     Indication: WOUND DRAINAGE
  2. BIBR 1048 (ANTITHROMBOTIC AGENTS) UNSPECIFIED [Suspect]
     Indication: ENDOMETRIAL CANCER
     Dates: end: 20070428
  3. CHEMOTHERAPEUTIC AGENT (ANTINEOPLASTIC AGENTS) UNSPECIFIED [Suspect]
     Indication: ENDOMETRIAL CANCER
  4. AMOXICILLIN (AMOXICILLIN) UNSPECIFIED [Suspect]
     Indication: DRUG USE FOR UNKNOWN INDICATION

REACTIONS (1)
  - RENAL FAILURE [None]
